FAERS Safety Report 7626818-X (Version None)
Quarter: 2011Q3

REPORT INFORMATION
  Report Type: 
  Country: None (occurrence: None)
  Receive Date: 20110721
  Receipt Date: 20110713
  Transmission Date: 20111222
  Serious: Yes (Hospitalization)
  Sender: FDA-Public Use
  Company Number: US-BAYER-201039854NA

PATIENT
  Age: 18 Year
  Sex: Female
  Weight: 94 kg

DRUGS (6)
  1. EFFEXOR [Concomitant]
     Indication: DEPRESSION
  2. IBUPROFEN [Concomitant]
     Indication: PAIN
     Dosage: DAILY DOSE 200 MG
  3. YAZ [Suspect]
     Indication: CONTRACEPTION
     Dosage: UNK UNK, UNK
     Route: 048
     Dates: start: 20081105, end: 20090401
  4. PROZAC [Concomitant]
     Route: 048
  5. PRILOSEC [Concomitant]
     Indication: FLATULENCE
  6. PEPCID [Concomitant]
     Indication: FLATULENCE

REACTIONS (5)
  - CHOLECYSTITIS ACUTE [None]
  - ANXIETY [None]
  - ANHEDONIA [None]
  - GALLBLADDER DISORDER [None]
  - PAIN [None]
